FAERS Safety Report 14509207 (Version 1)
Quarter: 2018Q1

REPORT INFORMATION
  Report Type: Spontaneous
  Country: US (occurrence: US)
  Receive Date: 20180209
  Receipt Date: 20180209
  Transmission Date: 20180509
  Serious: Yes (Life-Threatening, Disabling, Other)
  Sender: FDA-Public Use
  Company Number: US-TEVA-2018-US-856166

PATIENT
  Sex: Female

DRUGS (1)
  1. AMIODARONE [Suspect]
     Active Substance: AMIODARONE
     Indication: ATRIAL FIBRILLATION

REACTIONS (14)
  - Chest pain [Unknown]
  - Dyspnoea [Unknown]
  - Adverse event [Unknown]
  - Hypothyroidism [Unknown]
  - Off label use [Unknown]
  - Traumatic lung injury [Unknown]
  - Syncope [Unknown]
  - Weight decreased [Unknown]
  - Asthenia [Unknown]
  - Toxicity to various agents [Unknown]
  - Cough [Unknown]
  - Heart rate irregular [Unknown]
  - Fatigue [Unknown]
  - Dizziness [Unknown]

NARRATIVE: CASE EVENT DATE: 201507
